FAERS Safety Report 16056554 (Version 1)
Quarter: 2019Q2

REPORT INFORMATION
  Report Type: Spontaneous
  Country: US (occurrence: US)
  Receive Date: 20190309
  Receipt Date: 20190309
  Transmission Date: 20190711
  Serious: Yes (Life-Threatening, Hospitalization, Disabling, Other)
  Sender: FDA-Public Use
  Company Number: None

PATIENT
  Age: 43 Year
  Sex: Female
  Weight: 121.05 kg

DRUGS (1)
  1. VIMPAT [Suspect]
     Active Substance: LACOSAMIDE
     Indication: EPILEPSY
     Dosage: ?          QUANTITY:1 TABLET(S);?
     Route: 048
     Dates: start: 20190104, end: 20190226

REACTIONS (5)
  - Cardiac arrest [None]
  - Hypoxia [None]
  - Altered state of consciousness [None]
  - Respiratory failure [None]
  - Atrioventricular block [None]

NARRATIVE: CASE EVENT DATE: 20190226
